FAERS Safety Report 17564846 (Version 1)
Quarter: 2020Q1

REPORT INFORMATION
  Report Type: Spontaneous
  Country: GR (occurrence: GR)
  Receive Date: 20200320
  Receipt Date: 20200320
  Transmission Date: 20200409
  Serious: Yes (Other)
  Sender: FDA-Public Use
  Company Number: GR-009507513-2002GRC005854

PATIENT
  Age: 79 Year
  Sex: Female

DRUGS (5)
  1. REMERON [Suspect]
     Active Substance: MIRTAZAPINE
     Indication: DEPRESSED MOOD
     Dosage: HALF A TABLET PER DAY
     Route: 048
     Dates: end: 201912
  2. REMERON [Suspect]
     Active Substance: MIRTAZAPINE
     Dosage: 1 WHOLE TABLET EVERY NIGHT
     Route: 048
     Dates: start: 20200202, end: 202002
  3. REMERON [Suspect]
     Active Substance: MIRTAZAPINE
     Dosage: HALF A TABLET AT NOON EVERY DAY
     Route: 048
     Dates: start: 20200223
  4. CARVEPEN [Concomitant]
     Active Substance: CARVEDILOL
     Indication: HYPERTENSION
     Dosage: HALF A TABLET EVERY MORNING AND HALF A TABLET EVERY NIGHT
     Route: 048
  5. LEXOTANIL [Suspect]
     Active Substance: BROMAZEPAM
     Dosage: HALF A TABLET PER DAY
     Route: 048
     Dates: end: 20200223

REACTIONS (3)
  - Ischaemic stroke [Unknown]
  - Blood cholesterol increased [Unknown]
  - Insomnia [Recovering/Resolving]

NARRATIVE: CASE EVENT DATE: 2019
